FAERS Safety Report 24539632 (Version 1)
Quarter: 2024Q4

REPORT INFORMATION
  Report Type: Spontaneous
  Country: IT (occurrence: IT)
  Receive Date: 20241023
  Receipt Date: 20241023
  Transmission Date: 20250115
  Serious: Yes (Other)
  Sender: SANDOZ
  Company Number: IT-NOVPHSZ-PHHY2019IT151887

PATIENT
  Age: 83 Year
  Sex: Male

DRUGS (3)
  1. HEPARIN [Interacting]
     Active Substance: HEPARIN SODIUM
     Indication: Product used for unknown indication
     Dosage: UNK
     Route: 065
  2. PANTOPRAZOLE SODIUM [Interacting]
     Active Substance: PANTOPRAZOLE SODIUM
     Indication: Product used for unknown indication
     Dosage: UNK
     Route: 065
  3. WARFARIN [Interacting]
     Active Substance: WARFARIN
     Indication: Pulmonary embolism
     Dosage: UNK
     Route: 048

REACTIONS (2)
  - Labelled drug-drug interaction medication error [Unknown]
  - Haematuria [Recovering/Resolving]
